FAERS Safety Report 9747671 (Version 1)
Quarter: 2013Q4

REPORT INFORMATION
  Report Type: Spontaneous
  Country: US (occurrence: None)
  Receive Date: 20131211
  Receipt Date: 20131211
  Transmission Date: 20140711
  Serious: Yes (Other)
  Sender: FDA-Public Use
  Company Number: None

PATIENT
  Age: 20 Year
  Sex: Female
  Weight: 58.97 kg

DRUGS (1)
  1. DAYTRANA 30 MG [Suspect]
     Indication: ATTENTION DEFICIT/HYPERACTIVITY DISORDER
     Dosage: 1 PATCH DAILY APPLIED TO SURFACE OF SKIN
     Route: 062
     Dates: start: 20131104, end: 20131122

REACTIONS (4)
  - Depression [None]
  - Psychiatric symptom [None]
  - Feeling abnormal [None]
  - Product substitution issue [None]
